FAERS Safety Report 5555563-X (Version None)
Quarter: 2007Q4

REPORT INFORMATION
  Report Type: 
  Country: None (occurrence: None)
  Receive Date: 20071213
  Receipt Date: 20070823
  Transmission Date: 20080405
  Serious: No
  Sender: FDA-Public Use
  Company Number: US-AMGEN-KDL221096

PATIENT
  Sex: Female

DRUGS (2)
  1. ENBREL [Suspect]
     Indication: RHEUMATOID ARTHRITIS
     Route: 058
     Dates: start: 20070402
  2. ENBREL [Suspect]
     Indication: PSORIASIS

REACTIONS (10)
  - ARTHRITIS [None]
  - DIZZINESS [None]
  - INJECTION SITE RASH [None]
  - MENORRHAGIA [None]
  - MENSTRUAL DISORDER [None]
  - MIGRAINE [None]
  - MOBILITY DECREASED [None]
  - MUSCLE CONTRACTURE [None]
  - PRURITUS [None]
  - PYREXIA [None]
